FAERS Safety Report 19837990 (Version 1)
Quarter: 2021Q3

REPORT INFORMATION
  Report Type: Spontaneous
  Country: DE (occurrence: DE)
  Receive Date: 20210916
  Receipt Date: 20210916
  Transmission Date: 20211014
  Serious: Yes (Death, Hospitalization, Other)
  Sender: FDA-Public Use
  Company Number: DE-TEVA-2021-DE-1951505

PATIENT
  Age: 80 Year
  Sex: Female

DRUGS (14)
  1. MIRTAZAPIN [Concomitant]
     Active Substance: MIRTAZAPINE
     Dosage: 30 MILLIGRAM DAILY;  0?0?0?1
  2. DEXPANTHENOL. [Concomitant]
     Active Substance: DEXPANTHENOL
     Dosage: REQUIREMENT
  3. RISPERIDON [Suspect]
     Active Substance: RISPERIDONE
     Dosage: 1.5 MILLIGRAM DAILY; 1?1?1?0
  4. LERCANIDIPINE [Concomitant]
     Active Substance: LERCANIDIPINE
     Dosage: 20 MILLIGRAM DAILY; 1?0?1?0
  5. LEVODOPA/BENSERAZID [Concomitant]
     Active Substance: BENSERAZIDE\LEVODOPA
     Dosage: 12.5 | 50 MG, 2?2?1?0
  6. DIGITOXIN [Concomitant]
     Active Substance: DIGITOXIN
     Dosage: 100 MG, SCHEME
  7. TORASEMID [Concomitant]
     Active Substance: TORSEMIDE
     Dosage: 10 MILLIGRAM DAILY; 1?1?0?0
  8. PHENPROCOUMON [Concomitant]
     Active Substance: PHENPROCOUMON
     Dosage: SCHEME
  9. LACTULOSE. [Concomitant]
     Active Substance: LACTULOSE
     Dosage: 2 DOSAGE FORMS DAILY; 1 MB, 1?0?1?0
  10. MELPERONE [Concomitant]
     Active Substance: MELPERONE
     Dosage: 25 MG, AS NEEDED
  11. LEVOTHYROXINE SODIUM. [Concomitant]
     Active Substance: LEVOTHYROXINE SODIUM
     Dosage: 100 MICROGRAM DAILY; 1?0?0?0
  12. BISOPROLOL [Concomitant]
     Active Substance: BISOPROLOL
     Dosage: 5 MILLIGRAM DAILY; 1?0?0?0
  13. VENLAFAXINE [Concomitant]
     Active Substance: VENLAFAXINE HYDROCHLORIDE
     Dosage: 150 MILLIGRAM DAILY; 1?0?0?0
  14. METAMIZOL [Concomitant]
     Active Substance: METAMIZOLE SODIUM
     Dosage: 500 MG, AS NEEDED

REACTIONS (10)
  - Pyrexia [Unknown]
  - Pulmonary vein occlusion [Unknown]
  - Urinary tract infection [Unknown]
  - General physical health deterioration [Unknown]
  - Tremor [Unknown]
  - Restlessness [Unknown]
  - Atrial fibrillation [Unknown]
  - Dyspnoea [Unknown]
  - Tachycardia [Unknown]
  - Systemic infection [Unknown]
